FAERS Safety Report 21094690 (Version 1)
Quarter: 2022Q3

REPORT INFORMATION
  Report Type: Report from Study
  Country: NL (occurrence: NL)
  Receive Date: 20220718
  Receipt Date: 20220718
  Transmission Date: 20221027
  Serious: Yes (Other)
  Sender: FDA-Public Use
  Company Number: NL-MYLANLABS-2021M1037457

PATIENT
  Sex: Female

DRUGS (2)
  1. GLATIRAMER ACETATE [Suspect]
     Active Substance: GLATIRAMER ACETATE
     Indication: Multiple sclerosis
     Dosage: 40 MILLIGRAM, 3XW
     Route: 058
     Dates: start: 202106
  2. GLATIRAMER ACETATE [Suspect]
     Active Substance: GLATIRAMER ACETATE
     Indication: Relapsing multiple sclerosis

REACTIONS (8)
  - Multiple sclerosis [Not Recovered/Not Resolved]
  - Injection site erythema [Recovering/Resolving]
  - Injection site warmth [Recovering/Resolving]
  - Injection site pruritus [Recovering/Resolving]
  - Injection site haemorrhage [Recovering/Resolving]
  - Central nervous system lesion [Recovering/Resolving]
  - Abdominal pain lower [Not Recovered/Not Resolved]
  - Malaise [Unknown]

NARRATIVE: CASE EVENT DATE: 20210101
